FAERS Safety Report 9655920 (Version 6)
Quarter: 2014Q1

REPORT INFORMATION
  Report Type: Report from Study
  Country: DE (occurrence: DE)
  Receive Date: 20131030
  Receipt Date: 20140218
  Transmission Date: 20141002
  Serious: Yes (Hospitalization)
  Sender: FDA-Public Use
  Company Number: DE-AMGEN-DEUCT2013076269

PATIENT
  Age: 13 Year
  Sex: Male
  Weight: 58 kg

DRUGS (3)
  1. ETANERCEPT [Suspect]
     Indication: PSORIASIS
     Dosage: 50 MG, QWK
     Route: 058
     Dates: start: 20121018
  2. PSORCUTAN BETA [Concomitant]
     Indication: PSORIASIS
     Dosage: UNK
     Route: 061
     Dates: start: 20120417
  3. CEFACLOR [Concomitant]
     Indication: CHRONIC TONSILLITIS
     Dosage: UNK
     Route: 048
     Dates: start: 20130417, end: 20130427

REACTIONS (1)
  - Chronic tonsillitis [Recovered/Resolved]
